FAERS Safety Report 9217117 (Version 1)
Quarter: 2013Q2

REPORT INFORMATION
  Report Type: Spontaneous
  Country: US (occurrence: None)
  Receive Date: 20130405
  Receipt Date: 20130405
  Transmission Date: 20140414
  Serious: Yes (Life-Threatening)
  Sender: FDA-Public Use
  Company Number: None

PATIENT
  Age: 40 Year
  Sex: Male

DRUGS (1)
  1. HEPARIN [Suspect]
     Indication: DEEP VEIN THROMBOSIS
     Dosage: 900 UNITS PER HOUR IV
     Route: 042
     Dates: start: 20130208, end: 20130211

REACTIONS (3)
  - Subdural haematoma [None]
  - Unresponsive to stimuli [None]
  - Tonic clonic movements [None]
